FAERS Safety Report 24525386 (Version 3)
Quarter: 2025Q1

REPORT INFORMATION
  Report Type: Report from Study
  Country: DE (occurrence: DE)
  Receive Date: 20241019
  Receipt Date: 20250121
  Transmission Date: 20250409
  Serious: Yes (Other)
  Sender: JOHNSON AND JOHNSON
  Company Number: DE-JNJFOC-20240672156

PATIENT
  Age: 47 Year
  Sex: Male

DRUGS (2)
  1. SPRAVATO [Suspect]
     Active Substance: ESKETAMINE
     Indication: Depression
     Route: 045
     Dates: start: 20240624, end: 20240624
  2. SPRAVATO [Suspect]
     Active Substance: ESKETAMINE
     Route: 045
     Dates: start: 20240625, end: 20241008

REACTIONS (13)
  - Hallucination [Recovered/Resolved]
  - Speech disorder [Recovered/Resolved]
  - Flatulence [Recovered/Resolved]
  - Feeling drunk [Recovered/Resolved]
  - Peripheral swelling [Recovered/Resolved]
  - Depressed mood [Recovered/Resolved]
  - Fear [Recovered/Resolved]
  - Anosmia [Recovered/Resolved]
  - Colour blindness [Recovered/Resolved]
  - Colour blindness [Recovered/Resolved]
  - Dissociation [Recovered/Resolved]
  - Hypoaesthesia [Recovered/Resolved]
  - Feeling hot [Recovered/Resolved]

NARRATIVE: CASE EVENT DATE: 20240624
